FAERS Safety Report 15211632 (Version 1)
Quarter: 2018Q3

REPORT INFORMATION
  Report Type: Spontaneous
  Country: US (occurrence: US)
  Receive Date: 20180702
  Receipt Date: 20180702
  Transmission Date: 20181010
  Serious: Yes (Hospitalization)
  Sender: FDA-Public Use
  Company Number: None

PATIENT
  Age: 63 Year
  Sex: Female
  Weight: 110.25 kg

DRUGS (13)
  1. DILTIAZEM. [Concomitant]
     Active Substance: DILTIAZEM
  2. DAPTOMYCIN. [Suspect]
     Active Substance: DAPTOMYCIN
     Indication: POST PROCEDURAL INFECTION
     Dosage: 9 SYRINGE OTHER DAILY
     Route: 042
     Dates: start: 20180627, end: 20180627
  3. BIPAP [Concomitant]
     Active Substance: DEVICE
  4. BUPROP [Concomitant]
     Active Substance: BUPROPION
  5. GLUCOSAMINE [Concomitant]
     Active Substance: GLUCOSAMINE
  6. CHRONDROTIN [Concomitant]
  7. ORTHO BIOTIC [Concomitant]
     Active Substance: PROBIOTICS NOS
  8. PROBIOTIC [Concomitant]
     Active Substance: PROBIOTICS NOS
  9. IRON [Concomitant]
     Active Substance: IRON
  10. ATORVASTATIN [Concomitant]
     Active Substance: ATORVASTATIN
  11. ASPIRIN. [Concomitant]
     Active Substance: ASPIRIN
  12. MULTI VITIMAN [Concomitant]
  13. PICC LINE [Concomitant]

REACTIONS (3)
  - Feeling cold [None]
  - Tremor [None]
  - Product use issue [None]

NARRATIVE: CASE EVENT DATE: 20180627
